FAERS Safety Report 6983337-1 (Version None)
Quarter: 2010Q3

REPORT INFORMATION
  Report Type: 
  Country: None (occurrence: None)
  Receive Date: 20100910
  Receipt Date: 20100908
  Transmission Date: 20110219
  Serious: No
  Sender: FDA-Public Use
  Company Number: 1000015295

PATIENT
  Age: 67 Year
  Sex: Female

DRUGS (1)
  1. LEXAPRO [Suspect]
     Indication: ANXIETY
     Dosage: 10 MG (10 MG, 1 IN 1 D), ORAL
     Route: 048
     Dates: start: 20040101, end: 20070101

REACTIONS (4)
  - GASTRIC DISORDER [None]
  - METASTASES TO STOMACH [None]
  - NAUSEA [None]
  - OVARIAN NEOPLASM [None]
